FAERS Safety Report 13241357 (Version 1)
Quarter: 2017Q1

REPORT INFORMATION
  Report Type: Spontaneous
  Country: None (occurrence: US)
  Receive Date: 20170215
  Receipt Date: 20170215
  Transmission Date: 20170428
  Serious: No
  Sender: FDA-Public Use
  Company Number: None

PATIENT
  Age: 60 Year
  Sex: Male

DRUGS (1)
  1. HUMIRA [Suspect]
     Active Substance: ADALIMUMAB
     Indication: RHEUMATOID ARTHRITIS
     Dosage: 1 PEN EVERY 14 DAYS SUB Q?FROM 10 WEEKS AGO TO PRESENT
     Route: 058

REACTIONS (2)
  - Vision blurred [None]
  - Eyelid oedema [None]

NARRATIVE: CASE EVENT DATE: 20160113
